FAERS Safety Report 9991500 (Version 1)
Quarter: 2014Q1

REPORT INFORMATION
  Report Type: Spontaneous
  Country: US (occurrence: US)
  Receive Date: 20140310
  Receipt Date: 20140310
  Transmission Date: 20141002
  Serious: No
  Sender: FDA-Public Use
  Company Number: US-ABBVIE-13P-163-1133507-00

PATIENT
  Age: 37 Year
  Sex: Male

DRUGS (1)
  1. HUMIRA [Suspect]
     Indication: ANKYLOSING SPONDYLITIS
     Dates: start: 201307

REACTIONS (5)
  - Head injury [Recovering/Resolving]
  - Haemorrhage [Recovering/Resolving]
  - Excoriation [Recovering/Resolving]
  - Road traffic accident [Recovering/Resolving]
  - Headache [Not Recovered/Not Resolved]
